FAERS Safety Report 7928292-2 (Version None)
Quarter: 2011Q4

REPORT INFORMATION
  Report Type: 
  Country: None (occurrence: None)
  Receive Date: 20111118
  Receipt Date: 20111110
  Transmission Date: 20120403
  Serious: Yes (Death)
  Sender: FDA-Public Use
  Company Number: JP-EISAI INC-E7389-01584-SPO-JP

PATIENT
  Age: 61 Year
  Sex: Female

DRUGS (4)
  1. ZOMETA [Concomitant]
  2. HALAVEN [Suspect]
     Indication: BREAST CANCER
     Route: 041
     Dates: start: 20110914, end: 20110914
  3. HALAVEN [Suspect]
     Route: 041
     Dates: start: 20110928, end: 20110928
  4. OPIOID [Concomitant]

REACTIONS (3)
  - RESPIRATORY FAILURE [None]
  - STOMATITIS [None]
  - NEUTROPENIA [None]
